FAERS Safety Report 25275054 (Version 3)
Quarter: 2025Q3

REPORT INFORMATION
  Report Type: Spontaneous
  Country: US (occurrence: US)
  Receive Date: 20250506
  Receipt Date: 20250926
  Transmission Date: 20251021
  Serious: No
  Sender: PFIZER
  Company Number: US-PFIZER INC-PV202500053400

PATIENT
  Age: 74 Year
  Sex: Female

DRUGS (3)
  1. CIBINQO [Suspect]
     Active Substance: ABROCITINIB
     Route: 048
  2. CIBINQO [Suspect]
     Active Substance: ABROCITINIB
  3. CIBINQO [Suspect]
     Active Substance: ABROCITINIB
     Dosage: 50MG, 3 TABLETS ORALLY ONCE A DAY
     Route: 048

REACTIONS (3)
  - Drug ineffective [Unknown]
  - Acne [Unknown]
  - Off label use [Unknown]
